FAERS Safety Report 12966110 (Version 1)
Quarter: 2016Q4

REPORT INFORMATION
  Report Type: Spontaneous
  Country: US (occurrence: US)
  Receive Date: 20161120
  Receipt Date: 20161120
  Transmission Date: 20170207
  Serious: Yes (Other)
  Sender: FDA-Public Use
  Company Number: None

PATIENT
  Age: 58 Year
  Sex: Female
  Weight: 65.7 kg

DRUGS (2)
  1. MEDERMA [Suspect]
     Active Substance: AVOBENZONE\OCTOCRYLENE\OXYBENZONE
     Indication: SCAR
     Route: 061
     Dates: start: 20140821, end: 20141128
  2. TOROSINT [Concomitant]

REACTIONS (1)
  - Application site pruritus [None]

NARRATIVE: CASE EVENT DATE: 20161116
